FAERS Safety Report 25041854 (Version 3)
Quarter: 2025Q2

REPORT INFORMATION
  Report Type: Report from Study
  Country: US (occurrence: US)
  Receive Date: 20250305
  Receipt Date: 20250422
  Transmission Date: 20250716
  Serious: Yes (Hospitalization, Other)
  Sender: TAKEDA
  Company Number: US-TAKEDA-2025TUS022209

PATIENT
  Age: 69 Year
  Sex: Female

DRUGS (12)
  1. FRUQUINTINIB [Suspect]
     Active Substance: FRUQUINTINIB
     Indication: Colon cancer
  2. FRUQUINTINIB [Suspect]
     Active Substance: FRUQUINTINIB
  3. FRUQUINTINIB [Suspect]
     Active Substance: FRUQUINTINIB
     Dosage: 2 MILLIGRAM, QD
  4. FRUQUINTINIB [Suspect]
     Active Substance: FRUQUINTINIB
  5. FRUQUINTINIB [Suspect]
     Active Substance: FRUQUINTINIB
  6. CARVEDILOL [Concomitant]
     Active Substance: CARVEDILOL
  7. CHLORTHALIDONE [Concomitant]
     Active Substance: CHLORTHALIDONE
  8. KEPPRA [Concomitant]
     Active Substance: LEVETIRACETAM
  9. LEVOTHYROXINE [Concomitant]
     Active Substance: LEVOTHYROXINE
  10. LOPERAMIDE [Concomitant]
     Active Substance: LOPERAMIDE
  11. OXYCODONE [Concomitant]
     Active Substance: OXYCODONE
  12. SIMVASTATIN [Concomitant]
     Active Substance: SIMVASTATIN

REACTIONS (4)
  - Seizure [Recovered/Resolved]
  - Blood pressure abnormal [Recovered/Resolved]
  - Fatigue [Not Recovered/Not Resolved]
  - Product physical issue [Unknown]

NARRATIVE: CASE EVENT DATE: 20241031
